FAERS Safety Report 17033008 (Version 1)
Quarter: 2019Q4

REPORT INFORMATION
  Report Type: Report from Study
  Country: US (occurrence: US)
  Receive Date: 20191114
  Receipt Date: 20191114
  Transmission Date: 20200122
  Serious: Yes (Hospitalization, Other)
  Sender: FDA-Public Use
  Company Number: US-GILEAD-2019-0433042

PATIENT
  Age: 29 Year
  Sex: Male

DRUGS (5)
  1. AZTREONAM LYSINE [Suspect]
     Active Substance: AZTREONAM LYSINE
     Indication: CYSTIC FIBROSIS
     Dosage: 75 MG, TID QOM
     Route: 055
     Dates: start: 20130823
  2. METOPROLOL. [Concomitant]
     Active Substance: METOPROLOL
  3. TRAMADOL. [Concomitant]
     Active Substance: TRAMADOL
  4. AZTREONAM LYSINE [Suspect]
     Active Substance: AZTREONAM LYSINE
     Dosage: 75 MG, TID, 28 DAYS ON AND 28 DAYS OFF.
     Route: 055
     Dates: start: 20181228
  5. METHIMAZOLE. [Concomitant]
     Active Substance: METHIMAZOLE

REACTIONS (4)
  - Feeling abnormal [Not Recovered/Not Resolved]
  - Intentional dose omission [Recovered/Resolved]
  - Cystic fibrosis [Not Recovered/Not Resolved]
  - Condition aggravated [Not Recovered/Not Resolved]

NARRATIVE: CASE EVENT DATE: 20191010
